FAERS Safety Report 6289119-0 (Version None)
Quarter: 2009Q3

REPORT INFORMATION
  Report Type: 
  Country: None (occurrence: None)
  Receive Date: 20090729
  Receipt Date: 20090723
  Transmission Date: 20100115
  Serious: Yes (Life-Threatening)
  Sender: FDA-Public Use
  Company Number: FR-ASTRAZENECA-2009CG00208

PATIENT
  Age: 13764 Day
  Sex: Female

DRUGS (8)
  1. DIPRIVAN [Suspect]
     Route: 042
     Dates: start: 20081118, end: 20081118
  2. CELOCURIN [Suspect]
     Indication: GENERAL ANAESTHESIA
     Route: 042
     Dates: start: 20081118, end: 20081118
  3. SUFENTANIL MERCK [Suspect]
     Indication: GENERAL ANAESTHESIA
     Route: 042
     Dates: start: 20081118, end: 20081118
  4. SEVORANE [Suspect]
     Dates: start: 20081118, end: 20081118
  5. ACETAMINOPHEN [Suspect]
     Route: 042
     Dates: start: 20081118, end: 20081118
  6. ATARAX [Suspect]
     Indication: GENERAL ANAESTHESIA
     Route: 048
     Dates: start: 20081117, end: 20081118
  7. CEFAZOLINE MERCK [Suspect]
     Indication: PROPHYLAXIS
     Route: 042
     Dates: start: 20081118, end: 20081118
  8. BLEU PATENTE V [Suspect]
     Dates: start: 20081118, end: 20081118

REACTIONS (1)
  - ANAPHYLACTIC SHOCK [None]
